FAERS Safety Report 5525460-4 (Version None)
Quarter: 2007Q4

REPORT INFORMATION
  Report Type: 
  Country: None (occurrence: None)
  Receive Date: 20071119
  Receipt Date: 20071102
  Transmission Date: 20080405
  Serious: Yes (Death)
  Sender: FDA-Public Use
  Company Number: S07-FRA-05880-01

PATIENT
  Age: 80 Year
  Sex: Female

DRUGS (11)
  1. CITALOPRAM HYDROBROMIDE [Suspect]
     Dosage: 20 MG QD IV
     Route: 042
     Dates: start: 20070908, end: 20070930
  2. KEPPRA [Suspect]
     Dosage: 500 MG BID IV
     Route: 042
     Dates: start: 20070914, end: 20071002
  3. LEVOTHYROXINE SODIUM [Suspect]
     Dosage: 23 DROPS QD PO
     Route: 048
     Dates: start: 20070920, end: 20070101
  4. TAZOCILLINE (PIPERACILLIN/TAZOBACTAM) [Suspect]
     Dosage: 1 TID IV
     Route: 042
     Dates: start: 20070908, end: 20070101
  5. LASIX [Suspect]
     Dosage: 40 MG QD IV
     Route: 042
     Dates: start: 20070909, end: 20071006
  6. ARIXTRA [Suspect]
     Dosage: 1 QD SC
     Route: 058
     Dates: start: 20070909, end: 20071006
  7. TARGOCID [Suspect]
     Dosage: 400 MG BID IV
     Route: 042
     Dates: start: 20070908, end: 20070929
  8. AUGMENTIN [Suspect]
     Dosage: 3 G QD IV
     Route: 042
     Dates: start: 20070917, end: 20070921
  9. TOPIRAMATE [Concomitant]
  10. DEPAKINE (VALPROIC ACID) [Concomitant]
  11. OMEPRAZOLE [Concomitant]

REACTIONS (1)
  - BONE MARROW FAILURE [None]
